FAERS Safety Report 9803747 (Version 1)
Quarter: 2014Q1

REPORT INFORMATION
  Report Type: Spontaneous
  Country: IN (occurrence: None)
  Receive Date: 20140103
  Receipt Date: 20140103
  Transmission Date: 20141002
  Serious: Yes (Life-Threatening)
  Sender: FDA-Public Use
  Company Number: 2013P1022323

PATIENT
  Age: 55 Year
  Sex: Male

DRUGS (5)
  1. LITHIUM [Suspect]
     Indication: BIPOLAR DISORDER
  2. RAMIPRIL [Suspect]
  3. CARBAMAZEPINE [Concomitant]
  4. DUAL ANTIPLATELET THERAPY [Concomitant]
  5. STATIN [Concomitant]

REACTIONS (8)
  - Bradyarrhythmia [None]
  - Dialysis [None]
  - Drug level increased [None]
  - Cardiac disorder [None]
  - Dizziness [None]
  - Vomiting [None]
  - Sinus arrest [None]
  - Drug interaction [None]
